FAERS Safety Report 11264718 (Version 2)
Quarter: 2018Q3

REPORT INFORMATION
  Report Type: Spontaneous
  Country: FR (occurrence: FR)
  Receive Date: 20150713
  Receipt Date: 20180709
  Transmission Date: 20181010
  Serious: Yes (Other)
  Sender: FDA-Public Use
  Company Number: FR-ROCHE-1604801

PATIENT
  Age: 65 Year
  Sex: Male

DRUGS (10)
  1. ESBRIET [Suspect]
     Active Substance: PIRFENIDONE
     Dosage: 9 CAPSULES PER DAY
     Route: 048
     Dates: start: 20150128
  2. PLAVIX [Concomitant]
     Active Substance: CLOPIDOGREL BISULFATE
  3. ESBRIET [Suspect]
     Active Substance: PIRFENIDONE
     Dosage: 3 CAPSULES
     Route: 048
     Dates: start: 20150227
  4. INEXIUM [Suspect]
     Active Substance: ESOMEPRAZOLE
     Indication: PRODUCT USED FOR UNKNOWN INDICATION
     Route: 048
     Dates: start: 20141215
  5. ESBRIET [Suspect]
     Active Substance: PIRFENIDONE
     Route: 048
     Dates: start: 20150227, end: 20150311
  6. ESBRIET [Suspect]
     Active Substance: PIRFENIDONE
     Dosage: ADJUSTED
     Route: 048
  7. COVERSYL [Concomitant]
     Active Substance: PERINDOPRIL
  8. ESBRIET [Suspect]
     Active Substance: PIRFENIDONE
     Indication: IDIOPATHIC PULMONARY FIBROSIS
     Dosage: (3 CAPSULES/DAY FOR 7 DAYS, THEN 6 CAPSULES/DAY FOR 7 DAYS AND THEN 9 CAPSULES/DAY)
     Route: 048
     Dates: start: 20141215, end: 20150202
  9. SOLUPRED (FRANCE) [Suspect]
     Active Substance: PREDNISOLONE SODIUM METAZOATE
     Indication: COUGH
     Route: 048
     Dates: start: 20141215
  10. KARDEGIC [Concomitant]
     Active Substance: ASPIRIN DL-LYSINE

REACTIONS (7)
  - White blood cell count increased [Recovering/Resolving]
  - Hyperleukocytosis [Recovering/Resolving]
  - Asthenia [Recovered/Resolved]
  - Decreased appetite [Recovered/Resolved]
  - Weight decreased [Unknown]
  - Dyspepsia [Unknown]
  - Nausea [Recovered/Resolved]

NARRATIVE: CASE EVENT DATE: 20141229
